FAERS Safety Report 25295093 (Version 1)
Quarter: 2025Q2

REPORT INFORMATION
  Report Type: Spontaneous
  Country: US (occurrence: US)
  Receive Date: 20250511
  Receipt Date: 20250511
  Transmission Date: 20250717
  Serious: No
  Sender: SANOFI AVENTIS
  Company Number: US-SA-2025SA131466

PATIENT
  Age: 54 Year
  Sex: Female

DRUGS (6)
  1. DUPIXENT [Suspect]
     Active Substance: DUPILUMAB
     Indication: Dermatitis atopic
     Route: 058
     Dates: start: 20240625
  2. VITAMIN D [Concomitant]
     Active Substance: VITAMIN D NOS
     Route: 048
  3. VITAMIN B1 [Concomitant]
     Active Substance: THIAMINE HYDROCHLORIDE
     Route: 048
  4. OMEPRAZOLE [Concomitant]
     Active Substance: OMEPRAZOLE
     Route: 048
  5. METHYLPREDNISOLONE [Concomitant]
     Active Substance: METHYLPREDNISOLONE
     Route: 048
  6. TYLENOL 8 HR ARTHRITIS PAIN [Concomitant]
     Active Substance: ACETAMINOPHEN
     Route: 048

REACTIONS (1)
  - Therapeutic response shortened [Unknown]
